FAERS Safety Report 10952915 (Version 2)
Quarter: 2015Q1

REPORT INFORMATION
  Report Type: Spontaneous
  Country: US (occurrence: US)
  Receive Date: 20150325
  Receipt Date: 20150330
  Transmission Date: 20150721
  Serious: No
  Sender: FDA-Public Use
  Company Number: US-MYLANLABS-2014M1013985

PATIENT
  Age: 56 Year
  Sex: Male
  Weight: 79.37 kg

DRUGS (7)
  1. ATORVASTATIN CALCIUM TABLETS [Suspect]
     Active Substance: ATORVASTATIN CALCIUM
     Indication: BLOOD TRIGLYCERIDES INCREASED
  2. ALLOPURINOL. [Concomitant]
     Active Substance: ALLOPURINOL
     Indication: BLOOD URIC ACID
     Dosage: UNK
  3. TENORMIN [Concomitant]
     Active Substance: ATENOLOL
     Dosage: UNK
  4. NAPROXEN. [Concomitant]
     Active Substance: NAPROXEN
     Indication: ARTHRITIS
     Dosage: UNK
  5. ATORVASTATIN CALCIUM TABLETS [Suspect]
     Active Substance: ATORVASTATIN CALCIUM
     Indication: BLOOD CHOLESTEROL INCREASED
     Dosage: 10 MG, QD
     Route: 048
     Dates: start: 20141113, end: 20141201
  6. PRILOSEC [Concomitant]
     Active Substance: OMEPRAZOLE MAGNESIUM
     Dosage: UNK
  7. FLONASE                            /00908302/ [Concomitant]
     Dosage: UNK

REACTIONS (8)
  - Lethargy [Recovering/Resolving]
  - Dizziness [Recovering/Resolving]
  - Muscular weakness [Recovering/Resolving]
  - Muscle spasms [Recovering/Resolving]
  - Fatigue [Recovered/Resolved]
  - Nightmare [Recovered/Resolved]
  - Myalgia [Recovered/Resolved]
  - Asthenia [Recovering/Resolving]

NARRATIVE: CASE EVENT DATE: 201411
